FAERS Safety Report 4511588-4 (Version None)
Quarter: 2004Q4

REPORT INFORMATION
  Report Type: 
  Country: None (occurrence: None)
  Receive Date: 20041129
  Receipt Date: 20041008
  Transmission Date: 20050328
  Serious: No
  Sender: FDA-Public Use
  Company Number: US-BRISTOL-MYERS SQUIBB COMPANY-12726790

PATIENT
  Age: 29 Year
  Sex: Male
  Weight: 78 kg

DRUGS (2)
  1. ABILIFY [Suspect]
     Indication: GENERALISED ANXIETY DISORDER
     Dosage: 1/2 OF A 10 MG TABLET
     Route: 048
     Dates: start: 20041007, end: 20041007
  2. EFFEXOR [Concomitant]

REACTIONS (1)
  - DIZZINESS [None]
